FAERS Safety Report 6691544-0 (Version None)
Quarter: 2010Q2

REPORT INFORMATION
  Report Type: 
  Country: None (occurrence: None)
  Receive Date: 20100422
  Receipt Date: 20100416
  Transmission Date: 20101027
  Serious: Yes (Life-Threatening, Hospitalization, Other)
  Sender: FDA-Public Use
  Company Number: DE-ABBOTT-10P-062-0632380-00

PATIENT
  Age: 25 Year
  Sex: Male
  Weight: 98 kg

DRUGS (5)
  1. AKINETON [Suspect]
     Indication: DRUG USE FOR UNKNOWN INDICATION
     Dosage: PROLONGED-RELEASE TABLET
     Route: 048
     Dates: start: 20091110, end: 20100128
  2. LEPONEX [Suspect]
     Indication: SCHIZOPHRENIA, PARANOID TYPE
     Dosage: 100-850 MG DAILY, 50/100MG TABLET
     Route: 048
     Dates: start: 20081101, end: 20100127
  3. TAVOR [Concomitant]
     Indication: DRUG USE FOR UNKNOWN INDICATION
     Dosage: 1-6.5MG PER DAY SEVERAL BREAKS
     Route: 048
     Dates: start: 20090914
  4. HALDOL [Concomitant]
     Indication: DRUG USE FOR UNKNOWN INDICATION
     Dosage: 5-15 MG DAILY
     Route: 048
     Dates: start: 20091023, end: 20100121
  5. VALPROATE SODIUM [Concomitant]
     Indication: DRUG USE FOR UNKNOWN INDICATION
     Dosage: 300-1200MG PER DAY
     Dates: start: 20091103, end: 20100114

REACTIONS (1)
  - AGRANULOCYTOSIS [None]
